FAERS Safety Report 25414771 (Version 7)
Quarter: 2025Q4

REPORT INFORMATION
  Report Type: Report from Study
  Country: EU (occurrence: EU)
  Receive Date: 20250609
  Receipt Date: 20251020
  Transmission Date: 20260117
  Serious: Yes (Hospitalization)
  Sender: DAIICHI
  Company Number: EU-DSJP-DS-2025-145466-DE

PATIENT
  Age: 85 Year
  Sex: Female

DRUGS (24)
  1. ENHERTU [Suspect]
     Active Substance: FAM-TRASTUZUMAB DERUXTECAN-NXKI
     Indication: HER2 positive gastric cancer
     Dosage: 6.4 MG/KG, CYCLIC (2ND LINE)
     Route: 065
     Dates: start: 20250523, end: 20250523
  2. ENHERTU [Suspect]
     Active Substance: FAM-TRASTUZUMAB DERUXTECAN-NXKI
     Indication: Oesophageal adenocarcinoma
     Dosage: 4.4 MG/KG, CYCLIC
     Route: 065
     Dates: start: 20250613, end: 20250613
  3. PANTOPRAZOLE [Concomitant]
     Active Substance: PANTOPRAZOLE
     Indication: Gastrointestinal disorder prophylaxis
     Dosage: TOTAL DAILY DOSE: 80 MG, BID
     Route: 048
     Dates: end: 20250629
  4. METFORMIN [Concomitant]
     Active Substance: METFORMIN HYDROCHLORIDE
     Indication: Type 2 diabetes mellitus
     Dosage: TOTAL DAILY DOSE: 1000 MG, BID
     Route: 048
     Dates: end: 20250601
  5. INSULIN GLARGINE [Concomitant]
     Active Substance: INSULIN GLARGINE
     Indication: Type 2 diabetes mellitus
     Dosage: TOTAL DAILY DOSE: 60 IU, BID
     Route: 058
     Dates: end: 20250602
  6. LIRAGLUTIDE [Concomitant]
     Active Substance: LIRAGLUTIDE
     Indication: Type 2 diabetes mellitus
     Dosage: 7.2 MG, QD (DAILY)
     Route: 058
     Dates: end: 20250530
  7. BETAHISTINE MESILATE [Concomitant]
     Active Substance: BETAHISTINE MESILATE
     Indication: Vertigo
     Dosage: TOTAL DAILY DOSE: 12 MG, BID
     Route: 048
     Dates: end: 20250717
  8. DARIFENACIN [Concomitant]
     Active Substance: DARIFENACIN
     Indication: Micturition urgency
     Dosage: 15 MG, QD (DAILY)
     Route: 048
     Dates: end: 20250529
  9. RAMIPRIL [Concomitant]
     Active Substance: RAMIPRIL
     Indication: Hypertension
     Dosage: 5 MG, QD (DAILY)
     Route: 048
     Dates: end: 20250601
  10. BISOPROLOL [Concomitant]
     Active Substance: BISOPROLOL
     Indication: Atrial fibrillation
     Dosage: TOTAL DAILY DOSE: 7.5 MG, BID
     Route: 048
     Dates: end: 20250529
  11. BISOPROLOL [Concomitant]
     Active Substance: BISOPROLOL
     Indication: Coronary artery disease
     Dosage: TOTAL DAILY DOSE: 5.0 MG, BID
     Route: 048
     Dates: start: 20250530, end: 20250717
  12. LEVOTHYROXIN-NATRIUM LIOTHYRONIN-NATRIUM [Concomitant]
     Indication: Thyroidectomy
     Dosage: 90 MG, QD (DAILY)
     Route: 048
     Dates: end: 20250529
  13. LEVOTHYROXIN-NATRIUM LIOTHYRONIN-NATRIUM [Concomitant]
     Indication: Goitre
  14. ROSUVASTATIN [Concomitant]
     Active Substance: ROSUVASTATIN
     Indication: Hyperlipidaemia
     Dosage: 20 MG, QD (DAILY)
     Route: 048
     Dates: end: 20250713
  15. EZETIMIBE [Concomitant]
     Active Substance: EZETIMIBE
     Indication: Hyperlipidaemia
     Dosage: 10 MG, QD (DAILY)
     Route: 048
     Dates: end: 20250713
  16. ALLOPURINOL [Concomitant]
     Active Substance: ALLOPURINOL
     Indication: Blood uric acid increased
     Dosage: 300 MG, QD (DAILY)
     Route: 048
     Dates: end: 20250717
  17. ALLOPURINOL [Concomitant]
     Active Substance: ALLOPURINOL
     Indication: Chemotherapy
  18. TORSEMIDE [Concomitant]
     Active Substance: TORSEMIDE
     Indication: Cardiovascular disorder
     Dosage: 5 MG, QD (DAILY)
     Route: 048
     Dates: end: 20250625
  19. MOLSIDOMINE [Concomitant]
     Active Substance: MOLSIDOMINE
     Indication: Cardiovascular disorder
     Dosage: TOTAL DAILY DOSE: 16 MG, BID
     Route: 048
     Dates: end: 20250601
  20. CERTOPARINUM NATRICUM [Concomitant]
     Indication: Thrombosis prophylaxis
     Dosage: 3000 IU, QD (DAILY)
     Route: 058
     Dates: end: 20250529
  21. FRESUBIN [CAFFEINE;CARBOHYDRATES NOS;FATS NOS;FIBRE NOS;MINERALS NOS;P [Concomitant]
     Indication: Malnutrition
     Dosage: TOTAL DAILY DOSE: 400 ML, BID
     Route: 048
     Dates: start: 20250530, end: 20250611
  22. TROSPIUM CHLORIDE [Concomitant]
     Active Substance: TROSPIUM CHLORIDE
     Indication: Micturition urgency
     Dosage: 15 MG, QD
     Route: 048
     Dates: start: 20250530, end: 20250717
  23. LEVOTHYROXINE [Concomitant]
     Active Substance: LEVOTHYROXINE
     Indication: Thyroidectomy
     Dosage: 100 UG, QD
     Route: 048
     Dates: start: 20250530, end: 20250717
  24. LEVOTHYROXINE [Concomitant]
     Active Substance: LEVOTHYROXINE
     Indication: Goitre

REACTIONS (1)
  - Neutropenia [Recovered/Resolved]

NARRATIVE: CASE EVENT DATE: 20250530
